FAERS Safety Report 10235938 (Version 1)
Quarter: 2014Q1

REPORT INFORMATION
  Report Type: Spontaneous
  Country: US (occurrence: None)
  Receive Date: 20140306
  Receipt Date: 20140306
  Transmission Date: 20141002
  Serious: Yes (Other)
  Sender: FDA-Public Use
  Company Number: 163-21880-13103849

PATIENT
  Age: 84 Year
  Sex: Male

DRUGS (1)
  1. REVLIMID (LENALIDOMIDE) (20 MILLIGRAM, CAPSULES) [Suspect]
     Indication: PLASMA CELL MYELOMA
     Dosage: 20 MG, 21 IN 28 D, PO
     Dates: start: 20130923

REACTIONS (1)
  - Anaemia [None]
